FAERS Safety Report 14208303 (Version 1)
Quarter: 2017Q4

REPORT INFORMATION
  Report Type: Other
  Country: RU (occurrence: RU)
  Receive Date: 20171121
  Receipt Date: 20171121
  Transmission Date: 20180321
  Serious: Yes (Hospitalization)
  Sender: FDA-Public Use
  Company Number: RU-ACTELION-A-CH2017-162872

PATIENT
  Age: 69 Year

DRUGS (3)
  1. TRACLEER [Suspect]
     Active Substance: BOSENTAN
     Indication: PULMONARY ARTERIAL HYPERTENSION
     Dosage: 125 MG, BID
     Route: 048
     Dates: end: 201607
  2. TRACLEER [Suspect]
     Active Substance: BOSENTAN
     Dosage: 62.5 MG, BID
     Route: 048
     Dates: start: 2009
  3. VEROSPIRON [Concomitant]
     Active Substance: SPIRONOLACTONE
     Indication: PULMONARY ARTERIAL HYPERTENSION
     Dosage: 50 MG, OD
     Route: 048

REACTIONS (13)
  - Pulmonary arterial hypertension [Recovering/Resolving]
  - Dyspnoea exertional [Recovering/Resolving]
  - Tachyarrhythmia [Recovering/Resolving]
  - Condition aggravated [Recovering/Resolving]
  - Disease progression [Recovering/Resolving]
  - Hepatotoxicity [Unknown]
  - Aspartate aminotransferase abnormal [Unknown]
  - Respiration abnormal [Recovering/Resolving]
  - Haemoglobin increased [Unknown]
  - Orthopnoea [Recovering/Resolving]
  - Oedema peripheral [Recovering/Resolving]
  - Ascites [Recovering/Resolving]
  - Alanine aminotransferase abnormal [Unknown]

NARRATIVE: CASE EVENT DATE: 201409
